FAERS Safety Report 12166025 (Version 3)
Quarter: 2016Q2

REPORT INFORMATION
  Report Type: Spontaneous
  Country: IT (occurrence: IT)
  Receive Date: 20160309
  Receipt Date: 20160404
  Transmission Date: 20160815
  Serious: Yes (Other)
  Sender: FDA-Public Use
  Company Number: IT-BRISTOL-MYERS SQUIBB COMPANY-BMS-2016-003066

PATIENT
  Age: 74 Year
  Sex: Male

DRUGS (6)
  1. LUVION                             /00252501/ [Concomitant]
     Active Substance: CANRENONE
     Indication: PRODUCT USED FOR UNKNOWN INDICATION
     Dosage: 25 MG, UNK
     Route: 065
  2. SALVARSAN [Concomitant]
     Active Substance: ARSPHENAMINE
     Indication: PRODUCT USED FOR UNKNOWN INDICATION
     Dosage: 160 MG, UNK
     Route: 065
  3. ELIQUIS [Suspect]
     Active Substance: APIXABAN
     Indication: THROMBOSIS PROPHYLAXIS
     Dosage: 5 MG, BID
     Route: 065
     Dates: start: 201505, end: 201506
  4. CORDARONE [Concomitant]
     Active Substance: AMIODARONE HYDROCHLORIDE
     Indication: ARRHYTHMIA PROPHYLAXIS
     Dosage: 200 MG, UNK
     Route: 065
  5. LASIX [Concomitant]
     Active Substance: FUROSEMIDE
     Indication: PRODUCT USED FOR UNKNOWN INDICATION
     Dosage: 25 MG, BID
     Route: 065
  6. ELIQUIS [Suspect]
     Active Substance: APIXABAN
     Dosage: 2.5 MG, BID
     Route: 065
     Dates: start: 201506, end: 201511

REACTIONS (7)
  - Muscle fatigue [Unknown]
  - Petechiae [Unknown]
  - Pain [Unknown]
  - Muscle haemorrhage [Recovering/Resolving]
  - Movement disorder [Unknown]
  - Haematoma [Unknown]
  - Diplegia [Unknown]

NARRATIVE: CASE EVENT DATE: 201509
